FAERS Safety Report 24720211 (Version 1)
Quarter: 2024Q4

REPORT INFORMATION
  Report Type: Spontaneous
  Country: US (occurrence: US)
  Receive Date: 20241211
  Receipt Date: 20241211
  Transmission Date: 20250115
  Serious: Yes (Death)
  Sender: SPECGX
  Company Number: US-SPECGX-T202402359

PATIENT
  Age: 8 Year
  Sex: Male
  Weight: 25 kg

DRUGS (1)
  1. OXYCODONE HYDROCHLORIDE [Suspect]
     Active Substance: OXYCODONE HYDROCHLORIDE
     Indication: Pain
     Dosage: 3 MILLILITER, Q4H
     Route: 065
     Dates: start: 2018

REACTIONS (4)
  - Pneumonia [Fatal]
  - Unresponsive to stimuli [Fatal]
  - Accidental poisoning [Fatal]
  - Accidental exposure to product by child [Fatal]

NARRATIVE: CASE EVENT DATE: 20180101
